FAERS Safety Report 15087973 (Version 1)
Quarter: 2018Q2

REPORT INFORMATION
  Report Type: Spontaneous
  Country: DK (occurrence: DK)
  Receive Date: 20180629
  Receipt Date: 20180629
  Transmission Date: 20180711
  Serious: Yes (Hospitalization, Disabling)
  Sender: FDA-Public Use
  Company Number: DK-TEVA-2018-DK-913180

PATIENT
  Age: 26 Year
  Sex: Male

DRUGS (3)
  1. MIRTAZAPINE. [Concomitant]
     Active Substance: MIRTAZAPINE
     Indication: DEPRESSION
     Route: 048
  2. MIRTAZAPINE. [Concomitant]
     Active Substance: MIRTAZAPINE
     Dosage: NIGHT
     Dates: start: 20160811
  3. ANTABUS [Suspect]
     Active Substance: DISULFIRAM
     Indication: ALCOHOL ABUSE
     Route: 048
     Dates: start: 20160726, end: 201609

REACTIONS (15)
  - International normalised ratio increased [Recovered/Resolved]
  - Coma hepatic [Recovered/Resolved]
  - Hepatic enzyme increased [Recovered/Resolved]
  - Seizure [Recovered/Resolved]
  - Haemodialysis [Recovered/Resolved]
  - Change of bowel habit [Recovered/Resolved]
  - Hepatic failure [Recovered/Resolved with Sequelae]
  - Abdominal pain [Recovered/Resolved]
  - Hepatic function abnormal [Recovered/Resolved]
  - Impaired work ability [Not Recovered/Not Resolved]
  - Endotracheal intubation [Recovered/Resolved]
  - Liver transplant [Recovered/Resolved]
  - Blunted affect [Recovered/Resolved]
  - Jaundice [Recovered/Resolved]
  - Pyrexia [Recovered/Resolved]

NARRATIVE: CASE EVENT DATE: 20160818
